FAERS Safety Report 9134428 (Version 1)
Quarter: 2013Q1

REPORT INFORMATION
  Report Type: Spontaneous
  Country: DK (occurrence: DK)
  Receive Date: 20130304
  Receipt Date: 20130304
  Transmission Date: 20140127
  Serious: Yes (Life-Threatening)
  Sender: FDA-Public Use
  Company Number: DK-SANOFI-AVENTIS-2013SA018056

PATIENT
  Age: 62 Year
  Sex: Male
  Weight: 75 kg

DRUGS (2)
  1. PLAVIX [Suspect]
     Indication: TRANSIENT ISCHAEMIC ATTACK
     Dosage: DOSIS: 300 MG ENGANGSDOSIS. STYRKE: 300 MG
     Route: 065
     Dates: start: 20130218, end: 20130218
  2. ACETYLSALICYLIC ACID/MAGNESIUM OXIDE [Concomitant]
     Indication: TRANSIENT ISCHAEMIC ATTACK
     Dates: start: 20130218

REACTIONS (3)
  - Procedural hypotension [Recovered/Resolved]
  - Off label use [Recovered/Resolved]
  - Bradycardia [Recovered/Resolved]
